FAERS Safety Report 7984413-7 (Version None)
Quarter: 2011Q4

REPORT INFORMATION
  Report Type: 
  Country: None (occurrence: None)
  Receive Date: 20111216
  Receipt Date: 20111206
  Transmission Date: 20120403
  Serious: Yes (Hospitalization)
  Sender: FDA-Public Use
  Company Number: FR-ELI_LILLY_AND_COMPANY-FR201108008749

PATIENT
  Age: 66 Year
  Sex: Male
  Weight: 62 kg

DRUGS (6)
  1. FORTEO [Suspect]
     Indication: OSTEOPOROSIS
     Dosage: 20 UG, QD
     Route: 058
     Dates: start: 20110322
  2. ACUPAN [Concomitant]
  3. RAMIPRIL [Concomitant]
  4. PARACETAMOL [Concomitant]
  5. NEXIUM [Concomitant]
  6. FLUTICASONE PROPIONATE/SALMETEROL [Concomitant]

REACTIONS (4)
  - CORONARY ARTERY OCCLUSION [None]
  - ACUTE RESPIRATORY FAILURE [None]
  - BRONCHITIS [None]
  - CHRONIC OBSTRUCTIVE PULMONARY DISEASE [None]
